FAERS Safety Report 10585740 (Version 1)
Quarter: 2014Q4

REPORT INFORMATION
  Report Type: Spontaneous
  Country: FR (occurrence: FR)
  Receive Date: 20141114
  Receipt Date: 20141114
  Transmission Date: 20150529
  Serious: Yes (Hospitalization)
  Sender: FDA-Public Use
  Company Number: FR-009507513-1411FRA004513

PATIENT
  Age: 68 Year
  Sex: Female

DRUGS (13)
  1. HEPT-A-MYL [Concomitant]
     Active Substance: HEPTAMINOL HYDROCHLORIDE
     Dosage: UNK
     Dates: start: 20140618, end: 20140704
  2. TIAPRIDAL [Concomitant]
     Active Substance: TIAPRIDE HYDROCHLORIDE
     Dosage: UNK
     Dates: start: 20140528, end: 20140530
  3. NORSET [Suspect]
     Active Substance: MIRTAZAPINE
     Dosage: 1 DF, DAILY
     Route: 048
     Dates: start: 20140529, end: 20140615
  4. LARGACTIL [Suspect]
     Active Substance: CHLORPROMAZINE
     Dosage: 3 DF, DAILY
     Route: 048
     Dates: start: 20140607, end: 20140704
  5. VENLAFAXINE HYDROCHLORIDE. [Suspect]
     Active Substance: VENLAFAXINE HYDROCHLORIDE
     Dosage: 75 MG, TWICE
     Route: 048
     Dates: start: 20140625, end: 20140704
  6. DAFLON (DIOSMIN) [Concomitant]
     Active Substance: DIOSMIN
     Dosage: UNK
     Dates: start: 20140615, end: 20140704
  7. TANGANIL [Concomitant]
     Active Substance: ACETYLLEUCINE
     Dosage: UNK
     Dates: start: 20140529, end: 20140704
  8. IBUPROFEN. [Suspect]
     Active Substance: IBUPROFEN
     Dosage: UNK
     Route: 048
     Dates: start: 20140618, end: 20140628
  9. RISPERDAL [Concomitant]
     Active Substance: RISPERIDONE
     Dosage: UNK
     Dates: start: 20140606, end: 20140607
  10. ATARAX [Concomitant]
     Active Substance: HYDROXYZINE\HYDROXYZINE HYDROCHLORIDE
     Dosage: UNK
     Dates: start: 20140530, end: 20140606
  11. VENLAFAXINE HYDROCHLORIDE. [Suspect]
     Active Substance: VENLAFAXINE HYDROCHLORIDE
     Dosage: 75 MG, THREE TIMES DAILY
     Route: 048
     Dates: start: 20140521, end: 20140625
  12. HALDOL [Suspect]
     Active Substance: HALOPERIDOL
     Dosage: 1 DF, TID
     Route: 048
     Dates: start: 20140607, end: 20140704
  13. THERALENE [Suspect]
     Active Substance: TRIMEPRAZINE
     Dosage: UNK
     Route: 048
     Dates: start: 20140531, end: 20140704

REACTIONS (1)
  - Hepatitis [Recovering/Resolving]

NARRATIVE: CASE EVENT DATE: 20140704
